FAERS Safety Report 19250192 (Version 1)
Quarter: 2021Q2

REPORT INFORMATION
  Report Type: Spontaneous
  Country: US (occurrence: US)
  Receive Date: 20210513
  Receipt Date: 20210513
  Transmission Date: 20210717
  Serious: Yes (Hospitalization, Other)
  Sender: FDA-Public Use
  Company Number: US-LEADINGPHARMA-US-2021LEALIT00155

PATIENT
  Age: 53 Year
  Sex: Male

DRUGS (5)
  1. TYLENOL [Concomitant]
     Active Substance: ACETAMINOPHEN
     Indication: PYREXIA
     Route: 065
  2. METHYLENE BLUE. [Interacting]
     Active Substance: METHYLENE BLUE
     Indication: METHAEMOGLOBINAEMIA
     Route: 065
  3. ACETYLCYSTEINE. [Interacting]
     Active Substance: ACETYLCYSTEINE
     Indication: RESPIRATORY FAILURE
     Route: 065
  4. VITAMIN C [Interacting]
     Active Substance: ASCORBIC ACID
     Indication: METHAEMOGLOBINAEMIA
     Route: 042
  5. LIDOCAINE. [Suspect]
     Active Substance: LIDOCAINE
     Indication: ARTHRALGIA
     Route: 061

REACTIONS (3)
  - Respiratory failure [Recovering/Resolving]
  - Atrioventricular block complete [Recovered/Resolved]
  - Methaemoglobinaemia [Recovering/Resolving]
